FAERS Safety Report 20820625 (Version 1)
Quarter: 2022Q2

REPORT INFORMATION
  Report Type: Spontaneous
  Country: US (occurrence: None)
  Receive Date: 20220512
  Receipt Date: 20220512
  Transmission Date: 20220721
  Serious: Yes (Hospitalization)
  Sender: FDA-Public Use
  Company Number: None

PATIENT
  Age: 68 Year
  Sex: Male
  Weight: 83 kg

DRUGS (2)
  1. PAXLOVID [Suspect]
     Active Substance: NIRMATRELVIR\RITONAVIR
  2. WARFARIN [Suspect]
     Active Substance: WARFARIN

REACTIONS (2)
  - Eyelid bleeding [None]
  - Drug interaction [None]

NARRATIVE: CASE EVENT DATE: 20220511
